FAERS Safety Report 20877834 (Version 1)
Quarter: 2022Q2

REPORT INFORMATION
  Report Type: Spontaneous
  Country: US (occurrence: US)
  Receive Date: 20220526
  Receipt Date: 20220526
  Transmission Date: 20220721
  Serious: No
  Sender: FDA-Public Use
  Company Number: US-PFIZER INC-202200742435

PATIENT
  Age: 60 Year
  Sex: Female

DRUGS (4)
  1. PAXLOVID [Suspect]
     Active Substance: NIRMATRELVIR\RITONAVIR
     Indication: COVID-19 treatment
     Dosage: UNK
     Dates: start: 20220505, end: 20220510
  2. ALENDRONATE SODIUM [Concomitant]
     Active Substance: ALENDRONATE SODIUM
     Dosage: 70 MG, WEEKLY
     Dates: start: 202004
  3. VAGIFEM [Concomitant]
     Active Substance: ESTRADIOL
     Dosage: 10 UG, 2X/WEEK
     Dates: start: 202009
  4. ALLERTEC [CETIRIZINE] [Concomitant]
     Dosage: 10 MG, 1X/DAY

REACTIONS (7)
  - Pyrexia [Recovering/Resolving]
  - Headache [Recovering/Resolving]
  - Nasopharyngitis [Recovering/Resolving]
  - Cough [Recovering/Resolving]
  - Fatigue [Recovering/Resolving]
  - Pain [Recovering/Resolving]
  - Illness [Recovering/Resolving]

NARRATIVE: CASE EVENT DATE: 20220514
